FAERS Safety Report 25429802 (Version 1)
Quarter: 2025Q2

REPORT INFORMATION
  Report Type: Report from Study
  Country: US (occurrence: US)
  Receive Date: 20250612
  Receipt Date: 20250612
  Transmission Date: 20250717
  Serious: Yes (Hospitalization, Other)
  Sender: ABBVIE
  Company Number: US-ABBVIE-6165435

PATIENT
  Age: 58 Year
  Sex: Male

DRUGS (1)
  1. RINVOQ [Suspect]
     Active Substance: UPADACITINIB
     Indication: Crohn^s disease
     Route: 048
     Dates: start: 20241211

REACTIONS (13)
  - Large intestinal obstruction [Recovering/Resolving]
  - Weight increased [Recovered/Resolved]
  - Acne [Recovering/Resolving]
  - Productive cough [Unknown]
  - Dyspnoea [Unknown]
  - Peripheral swelling [Unknown]
  - Pain in extremity [Unknown]
  - Skin exfoliation [Unknown]
  - Unevaluable event [Unknown]
  - Stress [Recovered/Resolved]
  - Crohn^s disease [Recovered/Resolved]
  - Skin burning sensation [Not Recovered/Not Resolved]
  - Paraesthesia [Not Recovered/Not Resolved]

NARRATIVE: CASE EVENT DATE: 20241201
